FAERS Safety Report 5565790-3 (Version None)
Quarter: 2007Q4

REPORT INFORMATION
  Report Type: 
  Country: None (occurrence: None)
  Receive Date: 20071213
  Receipt Date: 20071206
  Transmission Date: 20080405
  Serious: Yes (Death)
  Sender: FDA-Public Use
  Company Number: 2007-05565

PATIENT
  Age: 8 Month
  Sex: Male
  Weight: 4.1 kg

DRUGS (5)
  1. FENTANYL CITRATE (WATSON LABORATORIES) [Suspect]
     Indication: GENERAL ANAESTHESIA
     Dosage: INTRAVENOUS
     Route: 042
     Dates: start: 20070101, end: 20070101
  2. SEVOFLURANE [Suspect]
     Indication: GENERAL ANAESTHESIA
     Dosage: RESPIRATORY
     Route: 055
     Dates: start: 20070101, end: 20070101
  3. ROCURONIUM(ROCURONIUM) [Suspect]
     Indication: GENERAL ANAESTHESIA
     Dosage: INTRAVENOUS
     Route: 042
     Dates: start: 20070101, end: 20070101
  4. OXYGEN(OXYGEN) [Suspect]
     Indication: GENERAL ANAESTHESIA
     Dosage: RESPIRATORY
     Route: 055
     Dates: start: 20070101, end: 20070101
  5. DIPRIVAN [Suspect]
     Indication: GENERAL ANAESTHESIA
     Dosage: 100 MG, INTRAVENOUS
     Route: 042
     Dates: start: 20070101, end: 20070101

REACTIONS (3)
  - HYPERTHERMIA [None]
  - POST PROCEDURAL COMPLICATION [None]
  - RHABDOMYOLYSIS [None]
